FAERS Safety Report 5819555-5 (Version None)
Quarter: 2008Q3

REPORT INFORMATION
  Report Type: 
  Country: None (occurrence: None)
  Receive Date: 20080723
  Receipt Date: 20080715
  Transmission Date: 20090109
  Serious: Yes (Death, Other)
  Sender: FDA-Public Use
  Company Number: US-ELI_LILLY_AND_COMPANY-US200807002991

PATIENT
  Age: 57 Year
  Sex: Female

DRUGS (2)
  1. ALIMTA [Suspect]
     Indication: PERITONEAL MESOTHELIOMA MALIGNANT
  2. CISPLATIN [Concomitant]
     Indication: PERITONEAL MESOTHELIOMA MALIGNANT

REACTIONS (2)
  - PANCYTOPENIA [None]
  - RENAL FAILURE [None]
